FAERS Safety Report 7475266-4 (Version None)
Quarter: 2011Q1

REPORT INFORMATION
  Report Type: 
  Country: None (occurrence: None)
  Receive Date: 20110302
  Receipt Date: 20101123
  Transmission Date: 20110831
  Serious: Yes (Life-Threatening, Hospitalization, Other)
  Sender: FDA-Public Use
  Company Number: 163-21880-10062512

PATIENT
  Age: 72 Year
  Sex: Male

DRUGS (16)
  1. COUMADIN [Concomitant]
  2. LANOXIN [Concomitant]
  3. TRAMADOL HCL [Concomitant]
  4. ALLOPURINOL [Concomitant]
  5. METOPROLOL TARTRATE [Concomitant]
  6. MARINOL [Concomitant]
  7. AMLODIPINE BESYLATE [Concomitant]
  8. HYDRALAZINE HCL [Concomitant]
  9. ASPIRIN [Concomitant]
  10. ACETAMINOPHEN [Concomitant]
  11. MULTIVITAMIN [Concomitant]
  12. PREVACID [Concomitant]
  13. REVLIMID [Suspect]
     Indication: MULTIPLE MYELOMA
     Dosage: 25 MG, DAYS 1-21 EVERY 28 DAYS, PO
     Route: 048
     Dates: start: 20100222, end: 20100509
  14. VANCOMYCIN [Concomitant]
  15. METHYLPHENIDATE HCL [Concomitant]
  16. LEXAPRO [Concomitant]

REACTIONS (6)
  - MYOCARDIAL INFARCTION [None]
  - CLOSTRIDIUM DIFFICILE COLITIS [None]
  - HAEMOGLOBIN DECREASED [None]
  - CORONARY ARTERY DISEASE [None]
  - BRADYCARDIA [None]
  - PLATELET COUNT DECREASED [None]
